FAERS Safety Report 7410989 (Version 4)
Quarter: 2012Q4

REPORT INFORMATION
  Report Type: 
  Country: JP (occurrence: US)
  Receive Date: 20100607
  Receipt Date: 20120924
  Transmission Date: 20130627
  Serious: Yes (Other)
  Sender: FDA-Public Use
  Company Number: US-JNJFOC-20090904882

PATIENT
  Sex: Female

DRUGS (11)
  1. LEVAQUIN [Suspect]
     Indication: UPPER RESPIRATORY TRACT INFECTION
     Route: 048
  2. LEVAQUIN [Suspect]
     Indication: ASTHMA
     Route: 048
  3. LEVAQUIN [Suspect]
     Indication: BRONCHITIS
     Route: 048
  4. LEVAQUIN [Suspect]
     Indication: PNEUMONIA
     Route: 048
  5. LEVAQUIN [Suspect]
     Indication: BACTERIAL INFECTION
     Route: 048
  6. AVELOX [Suspect]
     Indication: COUGH
     Route: 065
  7. PREDNISONE [Suspect]
     Indication: ASTHMA
     Route: 048
  8. PREDNISONE [Suspect]
     Indication: UPPER RESPIRATORY TRACT INFECTION
     Route: 048
  9. CIPROFLOXACIN [Suspect]
     Indication: UPPER RESPIRATORY TRACT INFECTION
     Route: 048
  10. ADVAIR [Suspect]
     Indication: ASTHMA
     Dosage: 500/50
     Route: 065
  11. FLONASE [Suspect]
     Indication: ASTHMA
     Dosage: 500/50
     Route: 065

REACTIONS (2)
  - Ligament rupture [Unknown]
  - Tendon rupture [Recovering/Resolving]
